FAERS Safety Report 23957969 (Version 5)
Quarter: 2024Q3

REPORT INFORMATION
  Report Type: Spontaneous
  Country: NZ (occurrence: NZ)
  Receive Date: 20240610
  Receipt Date: 20240725
  Transmission Date: 20241017
  Serious: Yes (Other)
  Sender: ADVANZ PHARMA
  Company Number: NZ-SA-2024SA163641

PATIENT

DRUGS (1)
  1. PLAQUENIL [Suspect]
     Active Substance: HYDROXYCHLOROQUINE SULFATE
     Indication: Systemic lupus erythematosus
     Dosage: UNK, FILM COATED TABLET
     Route: 065

REACTIONS (12)
  - Systemic lupus erythematosus [Unknown]
  - Skin burning sensation [Unknown]
  - Pain [Unknown]
  - Rash [Unknown]
  - Malaise [Unknown]
  - Paraesthesia [Unknown]
  - Electric shock sensation [Unknown]
  - Gait disturbance [Unknown]
  - Skin irritation [Unknown]
  - Symptom recurrence [Unknown]
  - Dizziness [Unknown]
  - Therapeutic product effect decreased [Unknown]

NARRATIVE: CASE EVENT DATE: 20240101
